FAERS Safety Report 17043871 (Version 1)
Quarter: 2019Q4

REPORT INFORMATION
  Report Type: Spontaneous
  Country: US (occurrence: US)
  Receive Date: 20191115
  Receipt Date: 20191115
  Transmission Date: 20200122
  Serious: Yes (Life-Threatening, Hospitalization)
  Sender: FDA-Public Use
  Company Number: None

PATIENT
  Age: 64 Year
  Sex: Male
  Weight: 135.2 kg

DRUGS (1)
  1. PIPERACILLIN AND TAZOBACTAM [Suspect]
     Active Substance: PIPERACILLIN SODIUM\TAZOBACTAM SODIUM
     Dosage: ?          OTHER FREQUENCY:ONCE;?
     Route: 042
     Dates: start: 20191114, end: 20191114

REACTIONS (9)
  - Pulseless electrical activity [None]
  - Infusion related reaction [None]
  - Cardiac failure congestive [None]
  - Urinary tract infection [None]
  - Agitation [None]
  - Unresponsive to stimuli [None]
  - Arthritis [None]
  - Hypertension [None]
  - Hyperhidrosis [None]

NARRATIVE: CASE EVENT DATE: 20191114
